FAERS Safety Report 21383595 (Version 1)
Quarter: 2022Q3

REPORT INFORMATION
  Report Type: Report from Study
  Country: IN (occurrence: IN)
  Receive Date: 20220927
  Receipt Date: 20220927
  Transmission Date: 20221027
  Serious: Yes (Other)
  Sender: FDA-Public Use
  Company Number: IN-SUN PHARMACEUTICAL INDUSTRIES LTD-2022R1-356081

PATIENT
  Age: 2 Month
  Sex: Male

DRUGS (2)
  1. OCTREOTIDE [Suspect]
     Active Substance: OCTREOTIDE
     Indication: Congenital hyperinsulinaemic hypoglycaemia
     Dosage: 3-4/DAY
     Route: 058
  2. DIAZOXIDE [Suspect]
     Active Substance: DIAZOXIDE
     Indication: Congenital hyperinsulinaemic hypoglycaemia
     Dosage: UNK
     Route: 048

REACTIONS (2)
  - Hypertrichosis [Unknown]
  - Treatment failure [Unknown]
